FAERS Safety Report 7953897-2 (Version None)
Quarter: 2011Q4

REPORT INFORMATION
  Report Type: 
  Country: None (occurrence: None)
  Receive Date: 20111202
  Receipt Date: 20111123
  Transmission Date: 20120403
  Serious: Yes (Other)
  Sender: FDA-Public Use
  Company Number: ES-BRISTOL-MYERS SQUIBB COMPANY-16169146

PATIENT
  Age: 65 Year
  Sex: Male

DRUGS (5)
  1. HEMOVAS [Concomitant]
     Dosage: 1DF= 600 UNITS NOS
     Route: 048
  2. SPRYCEL [Suspect]
     Indication: CHRONIC MYELOID LEUKAEMIA
     Dates: start: 20110531, end: 20111005
  3. ACETAMINOPHEN [Concomitant]
     Indication: PAIN
  4. PLAVIX [Concomitant]
     Dosage: 1DF=1 TABLET
     Route: 048
  5. NILOTINIB [Suspect]
     Dates: start: 20090901, end: 20110501

REACTIONS (1)
  - PERIPHERAL ARTERIAL OCCLUSIVE DISEASE [None]
